FAERS Safety Report 7184361-9 (Version None)
Quarter: 2010Q4

REPORT INFORMATION
  Report Type: 
  Country: None (occurrence: None)
  Receive Date: 20101222
  Receipt Date: 20100107
  Transmission Date: 20110411
  Serious: No
  Sender: FDA-Public Use
  Company Number: US-PFIZER INC-2010002956

PATIENT
  Sex: Female

DRUGS (1)
  1. DIFLUCAN [Suspect]
     Indication: FUNGAL INFECTION
     Route: 048
     Dates: start: 20090101, end: 20090101

REACTIONS (3)
  - ALOPECIA [None]
  - FUNGAL INFECTION [None]
  - WEIGHT DECREASED [None]
